FAERS Safety Report 4269398-1 (Version None)
Quarter: 2004Q1

REPORT INFORMATION
  Report Type: 
  Country: None (occurrence: None)
  Receive Date: 20040108
  Receipt Date: 20031229
  Transmission Date: 20041129
  Serious: Yes (Hospitalization)
  Sender: FDA-Public Use
  Company Number: 2003-DE-06484DE

PATIENT
  Age: 73 Year
  Sex: Male

DRUGS (5)
  1. AGGRENOX [Suspect]
     Indication: CEREBROVASCULAR ACCIDENT PROPHYLAXIS
     Dosage: DIPYRIDAMOLE 200MG, PO
     Route: 048
     Dates: start: 20021115, end: 20030927
  2. CAPTOPRIL [Concomitant]
  3. NITRENDIPIN [Concomitant]
  4. RANITIDINE (TAF) [Concomitant]
  5. SORTIS (TAF) [Concomitant]

REACTIONS (8)
  - ANAEMIA [None]
  - BLOOD PRESSURE SYSTOLIC INCREASED [None]
  - GASTRITIS [None]
  - GASTRITIS EROSIVE [None]
  - GASTRITIS HAEMORRHAGIC [None]
  - HELICOBACTER INFECTION [None]
  - REFLUX OESOPHAGITIS [None]
  - SYNCOPE [None]
